FAERS Safety Report 17427936 (Version 2)
Quarter: 2020Q1

REPORT INFORMATION
  Report Type: Spontaneous
  Country: JP (occurrence: JP)
  Receive Date: 20200217
  Receipt Date: 20200312
  Transmission Date: 20200409
  Serious: Yes (Other)
  Sender: FDA-Public Use
  Company Number: JP-VALIDUS PHARMACEUTICALS LLC-JP-2020VAL000112

PATIENT

DRUGS (3)
  1. LASIX [Suspect]
     Active Substance: FUROSEMIDE
     Indication: PRODUCT USED FOR UNKNOWN INDICATION
     Dosage: 40 MG, 1 TIME, INTERNAL USE
     Route: 048
  2. LASIX [Suspect]
     Active Substance: FUROSEMIDE
     Dosage: 20 MG, 1 TIME, INTERNAL USE
     Route: 048
  3. LASIX [Suspect]
     Active Substance: FUROSEMIDE
     Indication: PRODUCT USED FOR UNKNOWN INDICATION
     Dosage: 20 MG, ONE TIME, INJECTION
     Route: 065

REACTIONS (1)
  - Febrile neutropenia [Not Recovered/Not Resolved]
